FAERS Safety Report 23905415 (Version 4)
Quarter: 2025Q1

REPORT INFORMATION
  Report Type: Spontaneous
  Country: US (occurrence: US)
  Receive Date: 20240527
  Receipt Date: 20250129
  Transmission Date: 20250408
  Serious: Yes (Other)
  Sender: PFIZER
  Company Number: US-PFIZER INC-202400175092

PATIENT
  Age: 71 Year
  Sex: Female

DRUGS (24)
  1. XELJANZ [Suspect]
     Active Substance: TOFACITINIB CITRATE
     Dosage: 5 MG, 2X/DAY
     Route: 048
     Dates: start: 202305
  2. XELJANZ [Suspect]
     Active Substance: TOFACITINIB CITRATE
     Dosage: 5 MG, 2X/DAY
     Route: 048
     Dates: start: 202306
  3. ADVAIR HFA [Concomitant]
     Active Substance: FLUTICASONE PROPIONATE\SALMETEROL XINAFOATE
  4. APRISO [Concomitant]
     Active Substance: MESALAMINE
  5. ATORVASTATIN CALCIUM [Concomitant]
     Active Substance: ATORVASTATIN CALCIUM
  6. LANTUS [Concomitant]
     Active Substance: INSULIN GLARGINE
  7. LINZESS [Concomitant]
     Active Substance: LINACLOTIDE
  8. LYRICA [Concomitant]
     Active Substance: PREGABALIN
  9. MOUNJARO [Concomitant]
     Active Substance: TIRZEPATIDE
  10. PLAQUENIL [Concomitant]
     Active Substance: HYDROXYCHLOROQUINE SULFATE
  11. TYRVAYA [Concomitant]
     Active Substance: VARENICLINE TARTRATE
  12. XIIDRA [Concomitant]
     Active Substance: LIFITEGRAST
  13. CLONAZEPAM [Concomitant]
     Active Substance: CLONAZEPAM
  14. RETINOL [Concomitant]
     Active Substance: RETINOL
  15. COLLAGEN [Concomitant]
     Active Substance: COLLAGEN
  16. VITAMIN D3 [Concomitant]
     Active Substance: CHOLECALCIFEROL
  17. RETAINE MGD [Concomitant]
     Active Substance: LIGHT MINERAL OIL\MINERAL OIL
  18. FAMOTIDINE [Concomitant]
     Active Substance: FAMOTIDINE
  19. LORATADINE [Concomitant]
     Active Substance: LORATADINE
  20. TRAZODONE HCL [Concomitant]
     Active Substance: TRAZODONE HYDROCHLORIDE
  21. CYANOCOBALAMIN [Concomitant]
     Active Substance: CYANOCOBALAMIN
  22. BIOTIN [Concomitant]
     Active Substance: BIOTIN
  23. ACETAMINOPHEN [Concomitant]
     Active Substance: ACETAMINOPHEN
  24. BIFIDOBACTERIUM ANIMALIS LACTIS [Concomitant]
     Active Substance: BIFIDOBACTERIUM ANIMALIS LACTIS

REACTIONS (6)
  - Pneumonia [Unknown]
  - Polyp [Recovered/Resolved]
  - Blood alkaline phosphatase increased [Not Recovered/Not Resolved]
  - Pain in extremity [Not Recovered/Not Resolved]
  - Back pain [Not Recovered/Not Resolved]
  - Malabsorption [Recovering/Resolving]

NARRATIVE: CASE EVENT DATE: 20240201
